FAERS Safety Report 14563578 (Version 1)
Quarter: 2018Q1

REPORT INFORMATION
  Report Type: Spontaneous
  Country: US (occurrence: US)
  Receive Date: 20180222
  Receipt Date: 20180222
  Transmission Date: 20180509
  Serious: No
  Sender: FDA-Public Use
  Company Number: None

PATIENT
  Age: 27 Year
  Sex: Male

DRUGS (1)
  1. HARVONI [Suspect]
     Active Substance: LEDIPASVIR\SOFOSBUVIR
     Indication: HEPATITIS C
     Dosage: 90/400MG DAILY ORAL
     Route: 048
     Dates: start: 20171218

REACTIONS (3)
  - Impaired healing [None]
  - Contusion [None]
  - Pruritus [None]

NARRATIVE: CASE EVENT DATE: 20180116
